FAERS Safety Report 4869756-8 (Version None)
Quarter: 2005Q4

REPORT INFORMATION
  Report Type: 
  Country: None (occurrence: None)
  Receive Date: 20051230
  Receipt Date: 20051223
  Transmission Date: 20060501
  Serious: Yes (Other)
  Sender: FDA-Public Use
  Company Number: US-AVENTIS-200520910US

PATIENT
  Sex: Male

DRUGS (3)
  1. LANTUS [Suspect]
     Indication: DIABETES MELLITUS
     Dosage: DOSE: 30U AM, 20U PM
     Dates: end: 20051101
  2. LANTUS [Suspect]
     Dosage: DOSE: 30U AM, 10U PM
     Dates: start: 20051101
  3. NOVOLOG [Concomitant]
     Indication: DIABETES MELLITUS
     Dosage: DOSE: 5U BEFORE MEALS

REACTIONS (3)
  - CONVULSION [None]
  - DIABETES MELLITUS INADEQUATE CONTROL [None]
  - HYPOGLYCAEMIA [None]
